FAERS Safety Report 26059568 (Version 1)
Quarter: 2025Q4

REPORT INFORMATION
  Report Type: Spontaneous
  Country: US (occurrence: None)
  Receive Date: 20251118
  Receipt Date: 20251118
  Transmission Date: 20260117
  Serious: Yes (Death, Hospitalization)
  Sender: FDA-CTU
  Company Number: None

PATIENT
  Age: 19 Year
  Sex: Female
  Weight: 106.3 kg

DRUGS (5)
  1. CALASPARGASE PEGOL-MKNL [Suspect]
     Active Substance: CALASPARGASE PEGOL-MKNL
     Dates: end: 20251015
  2. DEXAMETHASONE [Suspect]
     Active Substance: DEXAMETHASONE
     Dates: end: 20251029
  3. DOXORUBICIN HYDROCHLORIDE [Suspect]
     Active Substance: DOXORUBICIN HYDROCHLORIDE
     Dates: end: 20251015
  4. METHOTREXATE [Suspect]
     Active Substance: METHOTREXATE
     Dates: end: 20231022
  5. VINCRISTINE SULFATE [Suspect]
     Active Substance: VINCRISTINE SULFATE
     Dates: end: 20251028

REACTIONS (6)
  - Haematological infection [None]
  - Staphylococcus test positive [None]
  - Corynebacterium test positive [None]
  - Septic shock [None]
  - Febrile neutropenia [None]
  - Acute respiratory failure [None]

NARRATIVE: CASE EVENT DATE: 20251105
